FAERS Safety Report 4296440-4 (Version None)
Quarter: 2004Q1

REPORT INFORMATION
  Report Type: 
  Country: None (occurrence: None)
  Receive Date: 20040212
  Receipt Date: 20040210
  Transmission Date: 20041129
  Serious: Yes (Other)
  Sender: FDA-Public Use
  Company Number: 2004198126JP

PATIENT
  Age: 79 Year
  Sex: Female

DRUGS (7)
  1. CABERGOLINE [Suspect]
     Indication: PARKINSON'S DISEASE
     Dosage: 1 MG/DAY, ORAL
     Route: 048
     Dates: start: 20031030
  2. HERBESSER [Concomitant]
  3. LOSARTAN POTASSIUM (LOSARTAN POTASSIUM) [Concomitant]
  4. DIART (AZOSEMIDE) [Concomitant]
  5. ALDACTONE [Concomitant]
  6. PRAVASTATIN [Concomitant]
  7. MAGNESIUM OXIDE [Concomitant]

REACTIONS (1)
  - DELUSION [None]
